FAERS Safety Report 16901616 (Version 1)
Quarter: 2019Q4

REPORT INFORMATION
  Report Type: Spontaneous
  Country: US (occurrence: US)
  Receive Date: 20191010
  Receipt Date: 20191010
  Transmission Date: 20200122
  Serious: No
  Sender: FDA-Public Use
  Company Number: US-JNJFOC-20191004384

PATIENT
  Age: 43 Year
  Sex: Female
  Weight: 79.45 kg

DRUGS (1)
  1. PEPCID AC [Suspect]
     Active Substance: FAMOTIDINE
     Indication: GASTROOESOPHAGEAL REFLUX DISEASE
     Dosage: ONCE OR TWICE A DAY. PRODUCT LAST USED DATE ON: 30/SEP/2019.
     Route: 048
     Dates: start: 20190918

REACTIONS (1)
  - Swollen tongue [Not Recovered/Not Resolved]

NARRATIVE: CASE EVENT DATE: 20190920
